FAERS Safety Report 5135585-3 (Version None)
Quarter: 2006Q4

REPORT INFORMATION
  Report Type: 
  Country: None (occurrence: None)
  Receive Date: 20061026
  Receipt Date: 20050331
  Transmission Date: 20070319
  Serious: Yes (Hospitalization, Disabling)
  Sender: FDA-Public Use
  Company Number: US-ROCHE-400335

PATIENT
  Sex: Male
  Weight: 79.4 kg

DRUGS (6)
  1. ACCUTANE [Suspect]
     Indication: ACNE
     Route: 048
     Dates: start: 19930915, end: 19931115
  2. ACCUTANE [Suspect]
     Route: 048
     Dates: start: 19980625, end: 19981014
  3. ACCUTANE [Suspect]
     Route: 048
     Dates: start: 19990903, end: 20000215
  4. ACCUTANE [Suspect]
     Route: 048
     Dates: start: 20031008, end: 20031112
  5. ACCUTANE [Suspect]
     Route: 048
     Dates: start: 20031112
  6. ACCUTANE [Suspect]
     Dosage: ALTERNATING DOSE OF 20 AND 40MG.
     Route: 048
     Dates: start: 20040105, end: 20040415

REACTIONS (27)
  - ABDOMINAL PAIN [None]
  - ABSCESS INTESTINAL [None]
  - BLOOD CHOLESTEROL INCREASED [None]
  - BLOOD TRIGLYCERIDES INCREASED [None]
  - COLITIS [None]
  - COLITIS ULCERATIVE [None]
  - COUGH [None]
  - DYSPLASIA [None]
  - DYSPNOEA [None]
  - EMOTIONAL DISTRESS [None]
  - FOREARM FRACTURE [None]
  - GASTROINTESTINAL DISORDER [None]
  - HAEMORRHOIDS [None]
  - HEADACHE [None]
  - HEPATIC ENZYME INCREASED [None]
  - INFLAMMATION [None]
  - INFLAMMATORY BOWEL DISEASE [None]
  - INTESTINAL HAEMORRHAGE [None]
  - LYMPHADENOPATHY [None]
  - MASS [None]
  - MULTI-ORGAN DISORDER [None]
  - PROCTITIS ULCERATIVE [None]
  - RADIUS FRACTURE [None]
  - RECTAL HAEMORRHAGE [None]
  - SWELLING [None]
  - TENDONITIS [None]
  - ULNA FRACTURE [None]
